FAERS Safety Report 7248252-7 (Version None)
Quarter: 2011Q1

REPORT INFORMATION
  Report Type: 
  Country: None (occurrence: None)
  Receive Date: 20110127
  Receipt Date: 20101228
  Transmission Date: 20110831
  Serious: Yes (Hospitalization)
  Sender: FDA-Public Use
  Company Number: US-BAYER-2011-007722

PATIENT
  Sex: Female
  Weight: 113.38 kg

DRUGS (9)
  1. YASMIN [Suspect]
     Indication: POLYCYSTIC OVARIES
  2. IBUPROFEN [Concomitant]
  3. GLUCOPHAGE [Concomitant]
     Dosage: 500 UNK, UNK
  4. YASMIN [Suspect]
     Indication: PROPHYLAXIS
  5. LEVAQUIN [Concomitant]
  6. YASMIN [Suspect]
     Indication: ACNE
     Dosage: 1 DF, QD
     Dates: start: 20020718, end: 20080101
  7. ZOLOFT [Concomitant]
     Indication: DEPRESSION
  8. MULTIVITAMIN [Concomitant]
     Indication: VITAMIN SUPPLEMENTATION
  9. ZOLOFT [Concomitant]
     Indication: ANXIETY
     Dosage: 100 MG, UNK

REACTIONS (3)
  - PALPITATIONS [None]
  - PULMONARY EMBOLISM [None]
  - DYSPNOEA [None]
